FAERS Safety Report 6714270-8 (Version None)
Quarter: 2010Q2

REPORT INFORMATION
  Report Type: 
  Country: None (occurrence: None)
  Receive Date: 20100506
  Receipt Date: 20090916
  Transmission Date: 20101027
  Serious: No
  Sender: FDA-Public Use
  Company Number: US-BAUSCH-2009BL004706

PATIENT
  Age: 82 Year
  Sex: Male

DRUGS (7)
  1. LOTEMAX [Suspect]
     Indication: IRITIS
     Route: 047
     Dates: start: 20090909, end: 20090914
  2. LOTEMAX [Suspect]
     Indication: UVEITIS
     Route: 047
     Dates: start: 20090909, end: 20090914
  3. LOTEMAX [Suspect]
     Route: 047
     Dates: start: 20090825, end: 20090908
  4. LOTEMAX [Suspect]
     Route: 047
     Dates: start: 20090825, end: 20090908
  5. XIBROM [Concomitant]
     Route: 047
     Dates: start: 20060101
  6. TRAVATAN [Concomitant]
     Indication: GLAUCOMA
     Route: 047
     Dates: start: 20060101
  7. COMBIGAN [Concomitant]
     Indication: GLAUCOMA
     Route: 047
     Dates: start: 20060101

REACTIONS (3)
  - EYE PAIN [None]
  - PHOTOPHOBIA [None]
  - VITREOUS FLOATERS [None]
